FAERS Safety Report 10354999 (Version 1)
Quarter: 2014Q3

REPORT INFORMATION
  Report Type: Spontaneous
  Country: US (occurrence: None)
  Receive Date: 20140729
  Receipt Date: 20140729
  Transmission Date: 20150326
  Serious: Yes (Disabling)
  Sender: FDA-Public Use
  Company Number: None

PATIENT
  Age: 66 Year
  Sex: Female
  Weight: 74.84 kg

DRUGS (1)
  1. IBANDRONATE SODIUM 150 MG MYLAN [Suspect]
     Active Substance: IBANDRONATE SODIUM
     Indication: OSTEOPENIA
     Dosage: 1 PILL MONTHLY TAKEN BY MOUTH
     Route: 048

REACTIONS (8)
  - Musculoskeletal pain [None]
  - Dysstasia [None]
  - Product substitution issue [None]
  - Sleep disorder [None]
  - Groin pain [None]
  - Joint range of motion decreased [None]
  - Gait disturbance [None]
  - Pain in extremity [None]

NARRATIVE: CASE EVENT DATE: 20140405
